FAERS Safety Report 8436866-8 (Version None)
Quarter: 2012Q2

REPORT INFORMATION
  Report Type: 
  Country: None (occurrence: None)
  Receive Date: 20120614
  Receipt Date: 20120601
  Transmission Date: 20120825
  Serious: No
  Sender: FDA-Public Use
  Company Number: US-ASTRAZENECA-2012SE37208

PATIENT
  Age: 68 Year
  Sex: Female
  Weight: 49.5 kg

DRUGS (11)
  1. CALCIUM 500 [Concomitant]
     Route: 048
  2. MUCINEX DM [Concomitant]
     Dosage: 60-1200 MG 1 TAB DAILY
     Route: 048
  3. ASPIRIN [Concomitant]
     Route: 048
  4. PROVENTIL [Concomitant]
     Indication: WHEEZING
     Route: 055
  5. SYMBICORT [Suspect]
     Dosage: 160/4.5 MCG TWO PUFFS TWO TIMES A DAY
     Route: 055
  6. COMBIVENT [Concomitant]
     Indication: DYSPNOEA
     Dosage: 18-103 MCG 2 PUFFS FOUR TIMES A DAY
     Route: 055
  7. CORICIDIN HBP COUGH AND COLD ORAL [Concomitant]
     Dosage: AS NEEDED
     Route: 048
  8. COMBIVENT [Concomitant]
     Indication: WHEEZING
     Dosage: 18-103 MCG 2 PUFFS FOUR TIMES A DAY
     Route: 055
  9. NICOTINE [Concomitant]
  10. ATROVENT HFA [Concomitant]
     Route: 055
  11. PROVENTIL [Concomitant]
     Indication: DYSPNOEA
     Route: 055

REACTIONS (1)
  - CHRONIC OBSTRUCTIVE PULMONARY DISEASE [None]
